FAERS Safety Report 26069860 (Version 1)
Quarter: 2025Q4

REPORT INFORMATION
  Report Type: Spontaneous
  Country: US (occurrence: None)
  Receive Date: 20251119
  Receipt Date: 20251119
  Transmission Date: 20260117
  Serious: Yes (Disabling, Other)
  Sender: FDA-CTU
  Company Number: None

PATIENT
  Age: 40 Year
  Sex: Male
  Weight: 90.72 kg

DRUGS (3)
  1. DEVICE [Suspect]
     Active Substance: DEVICE
  2. KEPPRA [Suspect]
     Active Substance: LEVETIRACETAM
  3. DEPAKOTE [Suspect]
     Active Substance: DIVALPROEX SODIUM

REACTIONS (9)
  - Cerebrovascular accident [None]
  - Seizure [None]
  - Oxygen saturation decreased [None]
  - Dizziness [None]
  - Chest pain [None]
  - Headache [None]
  - Dyspnoea [None]
  - Paraesthesia [None]
  - Loss of consciousness [None]

NARRATIVE: CASE EVENT DATE: 20230912
